FAERS Safety Report 8407988-2 (Version None)
Quarter: 2012Q2

REPORT INFORMATION
  Report Type: 
  Country: None (occurrence: None)
  Receive Date: 20120604
  Receipt Date: 20120531
  Transmission Date: 20120825
  Serious: Yes (Other)
  Sender: FDA-Public Use
  Company Number: US-MERCK-1205USA00558

PATIENT
  Age: 50 Year
  Sex: Female
  Weight: 109 kg

DRUGS (24)
  1. SPIRIVA [Concomitant]
     Route: 065
  2. LOPERAMIDE HYDROCHLORIDE [Concomitant]
     Route: 065
  3. ZANAFLEX [Concomitant]
     Route: 065
  4. LORAZEPAM [Concomitant]
     Route: 065
  5. GARLIC OIL [Concomitant]
     Route: 065
  6. CYCLOCORT [Concomitant]
     Route: 065
  7. BENADRYL [Concomitant]
     Route: 065
  8. ZOCOR [Suspect]
     Indication: BLOOD CHOLESTEROL ABNORMAL
     Route: 048
  9. LIPITOR [Suspect]
     Route: 048
  10. MIRAPEX [Concomitant]
     Route: 065
  11. ASPIRIN [Concomitant]
     Route: 065
  12. PERSANTINE [Concomitant]
     Route: 065
  13. BUMETANIDE [Concomitant]
     Route: 065
  14. LOVASTATIN [Concomitant]
     Route: 048
  15. DIOVAN HCT [Concomitant]
     Route: 065
  16. HYDROCHLOROTHIAZIDE [Concomitant]
     Route: 048
  17. FLEXERIL [Concomitant]
     Route: 065
  18. LIPITOR [Suspect]
     Indication: BLOOD CHOLESTEROL ABNORMAL
     Route: 048
     Dates: start: 19930101
  19. METOPROLOL TARTRATE [Concomitant]
     Route: 048
  20. UBIDECARENONE [Concomitant]
     Route: 065
  21. VITAMIN B COMPLEX [Concomitant]
     Route: 065
  22. JANUVIA [Concomitant]
     Route: 048
  23. ATROVENT [Concomitant]
     Route: 065
  24. GLYBURIDE [Concomitant]
     Route: 065

REACTIONS (8)
  - ADVERSE EVENT [None]
  - BRAIN STEM STROKE [None]
  - ABDOMINAL DISCOMFORT [None]
  - MUSCLE SPASMS [None]
  - MUSCLE FATIGUE [None]
  - MEMORY IMPAIRMENT [None]
  - HYPERSENSITIVITY [None]
  - HEADACHE [None]
